FAERS Safety Report 25324611 (Version 1)
Quarter: 2025Q2

REPORT INFORMATION
  Report Type: Spontaneous
  Country: US (occurrence: None)
  Receive Date: 20250515
  Receipt Date: 20250515
  Transmission Date: 20250716
  Serious: Yes (Other)
  Sender: FDA-CTU
  Company Number: None

PATIENT
  Age: 27 Year
  Sex: Male
  Weight: 102.97 kg

DRUGS (1)
  1. LENVIMA [Suspect]
     Active Substance: LENVATINIB
     Indication: Hepatocellular carcinoma
     Dosage: FREQUENCY : DAILY;?
     Route: 048

REACTIONS (5)
  - Contusion [None]
  - Diarrhoea [None]
  - Fatigue [None]
  - Decreased appetite [None]
  - Skin exfoliation [None]

NARRATIVE: CASE EVENT DATE: 20250515
